FAERS Safety Report 8235307-3 (Version None)
Quarter: 2012Q1

REPORT INFORMATION
  Report Type: 
  Country: None (occurrence: None)
  Receive Date: 20120326
  Receipt Date: 20120320
  Transmission Date: 20120608
  Serious: Yes (Other)
  Sender: FDA-Public Use
  Company Number: US-PFIZER INC-2012072884

PATIENT
  Sex: Female
  Weight: 95.238 kg

DRUGS (10)
  1. SINGULAIR [Concomitant]
     Dosage: UNK
  2. LASIX [Concomitant]
     Dosage: UNK
  3. XANAX [Concomitant]
     Dosage: UNK
  4. PLAVIX [Concomitant]
     Dosage: UNK
  5. TOPROL-XL [Concomitant]
     Dosage: UNK
  6. LIPITOR [Suspect]
     Indication: CARDIAC DISORDER
     Dosage: 40 MG, 1X/DAY
     Route: 048
  7. CELEBREX [Concomitant]
     Dosage: UNK
  8. GLUCOTROL [Suspect]
     Indication: BLOOD GLUCOSE INCREASED
     Dosage: 10 MG, 1X/DAY
     Route: 048
  9. CYMBALTA [Concomitant]
     Dosage: UNK
  10. ACETYLSALICYLIC ACID [Concomitant]
     Dosage: UNK, 1X/DAY

REACTIONS (2)
  - RESTLESS LEGS SYNDROME [None]
  - FIBROMYALGIA [None]
